FAERS Safety Report 6812919-2 (Version None)
Quarter: 2010Q3

REPORT INFORMATION
  Report Type: 
  Country: None (occurrence: None)
  Receive Date: 20100701
  Receipt Date: 20100621
  Transmission Date: 20110219
  Serious: Yes (Death)
  Sender: FDA-Public Use
  Company Number: MY-MYLANLABS-2010S1011001

PATIENT
  Age: 30 Year
  Sex: Male

DRUGS (1)
  1. CLOZAPINE [Suspect]

REACTIONS (3)
  - CATATONIA [None]
  - NEUROLEPTIC MALIGNANT SYNDROME [None]
  - WITHDRAWAL SYNDROME [None]
